FAERS Safety Report 23270539 (Version 1)
Quarter: 2023Q4

REPORT INFORMATION
  Report Type: Spontaneous
  Country: GB (occurrence: GB)
  Receive Date: 20231207
  Receipt Date: 20231207
  Transmission Date: 20240110
  Serious: Yes (Disabling)
  Sender: FDA-Public Use
  Company Number: None

PATIENT
  Age: 69 Year
  Sex: Female
  Weight: 44.453 kg

DRUGS (3)
  1. LEVOTHYROXINE [Suspect]
     Active Substance: LEVOTHYROXINE
     Indication: Product used for unknown indication
     Dosage: 1 EACH MORNING, 30-60 MIN BEFORE BREAKFAST, CAFFEINE DRINKS OR OTHER MEDS
  2. FERROUS FUMARATE [Concomitant]
     Active Substance: FERROUS FUMARATE
     Indication: Pernicious anaemia
     Dosage: 5ML AM WITH VIT C
     Dates: start: 20230829, end: 20231011
  3. VITAMIN C [Concomitant]
     Active Substance: ASCORBIC ACID
     Dosage: 5ML AM WITH VIT C (300ML)

REACTIONS (2)
  - Nausea [Unknown]
  - Syncope [Unknown]
